FAERS Safety Report 12858392 (Version 1)
Quarter: 2016Q4

REPORT INFORMATION
  Report Type: Spontaneous
  Country: US (occurrence: US)
  Receive Date: 20161018
  Receipt Date: 20161018
  Transmission Date: 20170207
  Serious: Yes (Other)
  Sender: FDA-Public Use
  Company Number: US-BAYER-2016-197900

PATIENT
  Age: 18 Year
  Sex: Female

DRUGS (2)
  1. MIDOL COMPLETE [Suspect]
     Active Substance: ACETAMINOPHEN\CAFFEINE\PYRILAMINE MALEATE
     Indication: MENSTRUAL DISORDER
     Dosage: 10 DF, ONCE
     Dates: start: 20161008, end: 20161008
  2. MIDOL COMPLETE [Suspect]
     Active Substance: ACETAMINOPHEN\CAFFEINE\PYRILAMINE MALEATE
     Indication: MENSTRUAL DISORDER
     Dosage: 2 CAPLET Q4HR AS NEEDED
     Route: 048

REACTIONS (2)
  - Intentional product use issue [Recovered/Resolved]
  - Intentional self-injury [Recovered/Resolved]

NARRATIVE: CASE EVENT DATE: 20161008
